FAERS Safety Report 17722292 (Version 1)
Quarter: 2020Q2

REPORT INFORMATION
  Report Type: Spontaneous
  Country: ES (occurrence: ES)
  Receive Date: 20200429
  Receipt Date: 20200429
  Transmission Date: 20200714
  Serious: Yes (Other)
  Sender: FDA-Public Use
  Company Number: ES-009507513-2004ESP007753

PATIENT
  Age: 57 Year
  Sex: Male

DRUGS (2)
  1. TEDIZOLID PHOSPHATE. [Suspect]
     Active Substance: TEDIZOLID PHOSPHATE
     Indication: OSTEOMYELITIS
     Dosage: 200 MILLIGRAM, ONCE DAILY
  2. HEPARIN LOW MOLECULAR WEIGHT [Suspect]
     Active Substance: UNSPECIFIED INGREDIENT
     Indication: DEEP VEIN THROMBOSIS
     Dosage: UNK

REACTIONS (2)
  - Off label use [Unknown]
  - Thrombocytopenia [Unknown]
